FAERS Safety Report 26208229 (Version 1)
Quarter: 2025Q4

REPORT INFORMATION
  Report Type: Spontaneous
  Country: US (occurrence: None)
  Receive Date: 20251226
  Receipt Date: 20251226
  Transmission Date: 20260117
  Serious: Yes (Hospitalization)
  Sender: FDA-CTU
  Company Number: None

PATIENT
  Age: 31 Year
  Sex: Female

DRUGS (19)
  1. TACROLIMUS [Suspect]
     Active Substance: TACROLIMUS
     Indication: Renal transplant
     Dosage: 8 MG TWICE A DAY ORAL
     Route: 048
  2. MYCOPHENOLIC ACID [Suspect]
     Active Substance: MYCOPHENOLIC ACID
     Indication: Renal transplant
     Dosage: 360 MG TWICE A DAY ORAL
     Route: 048
  3. AMITRIPTYLINE [Concomitant]
     Active Substance: AMITRIPTYLINE
  4. ASPIRIN 81 MG EC LOW DOSE TABLETS [Concomitant]
  5. ATORVASTATIN [Concomitant]
     Active Substance: ATORVASTATIN
  6. ATOVAQUONE 750 MG/5 ML SUSPENSION [Concomitant]
  7. CALCITRIOL 0.25 MCG CAPSULES [Concomitant]
  8. ESCITALOPRAM 10 MG TABLETS [Concomitant]
  9. FOLIC ACID 1 MG TABLETS [Concomitant]
  10. GENTAMICIN 0.1% CREAM [Concomitant]
  11. LISINOPRIL [Concomitant]
     Active Substance: LISINOPRIL
  12. MAG-OXIDE 400 MG TABLETS [Concomitant]
  13. METOPROLOL ER SUCCINATE 25 MG TABLETS [Concomitant]
  14. OMEPRAZOLE [Concomitant]
     Active Substance: OMEPRAZOLE
  15. PREDNISONE [Concomitant]
     Active Substance: PREDNISONE
  16. SEVELAMER CARBONATE [Concomitant]
     Active Substance: SEVELAMER CARBONATE
  17. SODIUM BICARBONATE 10 GR TABLETS [Concomitant]
  18. SULFAMETHOXAZOLE/TRIMETHROPRIM 400/80 MG TABLETS [Concomitant]
  19. VALGANCICLOVIR 450 MG TABLETS [Concomitant]

REACTIONS (1)
  - Renal haemorrhage [None]
